FAERS Safety Report 6346591-5 (Version None)
Quarter: 2009Q3

REPORT INFORMATION
  Report Type: 
  Country: None (occurrence: None)
  Receive Date: 20090828
  Receipt Date: 20090823
  Transmission Date: 20100115
  Serious: Yes (Other)
  Sender: FDA-Public Use
  Company Number: CHPA2009US17499

PATIENT
  Age: 27 Year
  Sex: Female

DRUGS (1)
  1. DOAN'S P.M. CAPLETS (NCH) (MAGNESIUM SALICYLATE, DIPHENYDRAMINE) CAPLE [Suspect]
     Indication: BACK PAIN
     Dosage: 2 DF, ONCE/SINGLE, ORAL
     Route: 048
     Dates: start: 20090820, end: 20090820

REACTIONS (1)
  - CHOLECYSTITIS [None]
